FAERS Safety Report 7027151-X (Version None)
Quarter: 2010Q4

REPORT INFORMATION
  Report Type: 
  Country: None (occurrence: None)
  Receive Date: 20101004
  Receipt Date: 20100922
  Transmission Date: 20110411
  Serious: Yes (Hospitalization)
  Sender: FDA-Public Use
  Company Number: US-JNJFOC-20100907684

PATIENT
  Sex: Female
  Weight: 51.6 kg

DRUGS (4)
  1. INFLIXIMAB, RECOMBINANT [Suspect]
     Indication: CROHN'S DISEASE
     Route: 042
  2. INFLIXIMAB, RECOMBINANT [Suspect]
     Route: 042
  3. PREDNISONE [Concomitant]
  4. MERCAPTOPURINE [Concomitant]

REACTIONS (3)
  - DEHYDRATION [None]
  - OVARIAN CYST RUPTURED [None]
  - VOMITING [None]
